FAERS Safety Report 6743417-2 (Version None)
Quarter: 2010Q2

REPORT INFORMATION
  Report Type: 
  Country: None (occurrence: None)
  Receive Date: 20100527
  Receipt Date: 20100518
  Transmission Date: 20101027
  Serious: Yes (Other)
  Sender: FDA-Public Use
  Company Number: SK-BAXTER-2010BH013736

PATIENT
  Age: 26 Year
  Sex: Female
  Weight: 53 kg

DRUGS (2)
  1. GAMMAGARD LIQUID [Suspect]
     Indication: IMMUNODEFICIENCY COMMON VARIABLE
     Route: 042
     Dates: start: 20100401, end: 20100401
  2. GAMMAGARD LIQUID [Suspect]
     Route: 042
     Dates: start: 20090101, end: 20100331

REACTIONS (7)
  - ANXIETY [None]
  - BACK PAIN [None]
  - CHILLS [None]
  - HYPOTENSION [None]
  - MUSCLE SPASMS [None]
  - PAIN IN EXTREMITY [None]
  - TACHYCARDIA [None]
